FAERS Safety Report 4570169-7 (Version None)
Quarter: 2005Q1

REPORT INFORMATION
  Report Type: 
  Country: None (occurrence: None)
  Receive Date: 20050202
  Receipt Date: 20041206
  Transmission Date: 20050727
  Serious: Yes (Hospitalization)
  Sender: FDA-Public Use
  Company Number: F01200403848

PATIENT
  Age: 78 Year
  Sex: Female

DRUGS (5)
  1. OXALIPLATIN - SOLUTION - 216 MG / SOLUTION - 216 MG [Suspect]
     Indication: COLON CANCER
     Dosage: 216 MG Q3W / 216 MG Q3W INTRAVENOUS NOS
     Route: 042
     Dates: start: 20041103, end: 20041103
  2. CAPECITABLE - TABLET - 1500 MG / TABLET - 1500 MG [Suspect]
     Dosage: 1500 MG TWICE A DAY PER ORAL FROM D1 TO D15, Q3W
     Route: 048
     Dates: start: 20041103, end: 20041117
  3. BELOC ZOK MITE (METOPROLOL SUCCINATE) [Concomitant]
  4. FOLIC ACID [Concomitant]
  5. UNKNOWN MEDICATION (GENERIC COMPONENT UNKNOWN) [Concomitant]

REACTIONS (5)
  - BLOOD CREATINE DECREASED [None]
  - DIARRHOEA [None]
  - PROTHROMBIN TIME SHORTENED [None]
  - THROMBOSIS [None]
  - VOMITING [None]
